FAERS Safety Report 7136959-1 (Version None)
Quarter: 2010Q4

REPORT INFORMATION
  Report Type: 
  Country: None (occurrence: None)
  Receive Date: 20101119
  Receipt Date: 20101112
  Transmission Date: 20110411
  Serious: Yes (Other)
  Sender: FDA-Public Use
  Company Number: 2010SP060159

PATIENT
  Sex: Male

DRUGS (3)
  1. PREGNYL [Suspect]
     Indication: PRODUCT USED FOR UNKNOWN INDICATION
     Dosage: 5000 IU;ONCE
  2. ARIMIDEX [Concomitant]
  3. EXEMESTANE [Concomitant]

REACTIONS (3)
  - ABDOMINAL DISTENSION [None]
  - GYNAECOMASTIA [None]
  - INFERTILITY [None]
